FAERS Safety Report 12331562 (Version 1)
Quarter: 2016Q2

REPORT INFORMATION
  Report Type: Spontaneous
  Country: US (occurrence: US)
  Receive Date: 20160504
  Receipt Date: 20160504
  Transmission Date: 20160815
  Serious: No
  Sender: FDA-Public Use
  Company Number: US-ROCHE-1636986

PATIENT
  Sex: Female
  Weight: 72.64 kg

DRUGS (1)
  1. ESBRIET [Suspect]
     Active Substance: PIRFENIDONE
     Indication: IDIOPATHIC PULMONARY FIBROSIS
     Route: 048
     Dates: start: 20150917

REACTIONS (6)
  - Headache [Unknown]
  - Sinusitis [Unknown]
  - Dizziness [Unknown]
  - Nausea [Unknown]
  - Sinus disorder [Unknown]
  - Fatigue [Unknown]
